FAERS Safety Report 6414797-2 (Version None)
Quarter: 2009Q4

REPORT INFORMATION
  Report Type: 
  Country: None (occurrence: None)
  Receive Date: 20091026
  Receipt Date: 20091026
  Transmission Date: 20100525
  Serious: No
  Sender: FDA-Public Use
  Company Number: None

PATIENT
  Age: 82 Year
  Sex: Female
  Weight: 53.0709 kg

DRUGS (1)
  1. WELCHOL 650 MG DAIICHI SANKYO, INC. [Suspect]
     Indication: BLOOD CHOLESTEROL INCREASED
     Dosage: 2 TABLETS TWICE/DAY PO
     Route: 048
     Dates: start: 20090924, end: 20091021

REACTIONS (4)
  - ASTHENIA [None]
  - FATIGUE [None]
  - FOOD CRAVING [None]
  - HUNGER [None]
